FAERS Safety Report 7332198-X (Version None)
Quarter: 2011Q1

REPORT INFORMATION
  Report Type: 
  Country: None (occurrence: None)
  Receive Date: 20110304
  Receipt Date: 20110225
  Transmission Date: 20110831
  Serious: Yes (Disabling, Other)
  Sender: FDA-Public Use
  Company Number: US-ROCHE-384576

PATIENT
  Sex: Male
  Weight: 76.2 kg

DRUGS (3)
  1. ACCUTANE [Suspect]
     Indication: ACNE
     Route: 048
     Dates: start: 19880101, end: 19910101
  2. ACCUTANE [Suspect]
     Route: 048
     Dates: start: 19940101, end: 19970101
  3. ACCUTANE [Suspect]
     Dosage: STILL RECEIVING TREATMENT ON 26 JUN 2000
     Route: 048
     Dates: start: 20000101

REACTIONS (20)
  - COLITIS ULCERATIVE [None]
  - CATARACT [None]
  - ARTHRITIS [None]
  - POLYP [None]
  - INTESTINAL HAEMORRHAGE [None]
  - ANAL FISTULA [None]
  - ABNORMAL BEHAVIOUR [None]
  - INSOMNIA [None]
  - MULTI-ORGAN DISORDER [None]
  - DEPRESSION [None]
  - CROHN'S DISEASE [None]
  - GASTROINTESTINAL DISORDER [None]
  - SUICIDAL IDEATION [None]
  - BIPOLAR DISORDER [None]
  - INFLAMMATORY BOWEL DISEASE [None]
  - RECTAL HAEMORRHAGE [None]
  - CHRONIC FATIGUE SYNDROME [None]
  - ANXIETY [None]
  - MOOD SWINGS [None]
  - STRESS [None]
